FAERS Safety Report 7262956-1 (Version None)
Quarter: 2011Q1

REPORT INFORMATION
  Report Type: 
  Country: None (occurrence: None)
  Receive Date: 20110130
  Receipt Date: 20101012
  Transmission Date: 20110831
  Serious: No
  Sender: FDA-Public Use
  Company Number: US-ABBOTT-10P-163-0678862-00

PATIENT
  Sex: Female

DRUGS (3)
  1. HUMIRA [Suspect]
     Indication: PSORIASIS
     Dates: start: 20090101
  2. HUMIRA [Suspect]
     Indication: PSORIATIC ARTHROPATHY
  3. ISONIAZID [Concomitant]
     Indication: TUBERCULIN TEST POSITIVE

REACTIONS (2)
  - TUBERCULIN TEST POSITIVE [None]
  - SEROCONVERSION TEST POSITIVE [None]
